FAERS Safety Report 20730130 (Version 3)
Quarter: 2022Q2

REPORT INFORMATION
  Report Type: Spontaneous
  Country: US (occurrence: US)
  Receive Date: 20220420
  Receipt Date: 20220523
  Transmission Date: 20220721
  Serious: No
  Sender: FDA-Public Use
  Company Number: US-PFIZER INC-202200397740

PATIENT
  Age: 13 Year
  Sex: Male

DRUGS (1)
  1. GENOTROPIN [Suspect]
     Active Substance: SOMATROPIN
     Indication: Noonan syndrome
     Dosage: UNK

REACTIONS (5)
  - Intentional product misuse [Unknown]
  - Wrong technique in device usage process [Unknown]
  - Device difficult to use [Unknown]
  - Injection site pain [Unknown]
  - Drug resistance [Unknown]
